FAERS Safety Report 9760728 (Version 1)
Quarter: 2013Q4

REPORT INFORMATION
  Report Type: Spontaneous
  Country: US (occurrence: US)
  Receive Date: 20131216
  Receipt Date: 20131216
  Transmission Date: 20140711
  Serious: No
  Sender: FDA-Public Use
  Company Number: US-BIOGENIDEC-2013BI101151

PATIENT
  Age: 68 Year
  Sex: Male
  Weight: 116 kg

DRUGS (13)
  1. TECFIDERA [Suspect]
     Indication: PRODUCT USED FOR UNKNOWN INDICATION
     Route: 048
  2. TECFIDERA [Suspect]
     Indication: PRODUCT USED FOR UNKNOWN INDICATION
     Route: 048
  3. ARICEPT [Concomitant]
  4. LIPITOR [Concomitant]
  5. METOPROL [Concomitant]
  6. ASPIRIN [Concomitant]
  7. PLAVIX [Concomitant]
  8. TAMSULOSIN [Concomitant]
  9. DEPAKOTE ER [Concomitant]
  10. ZYLOPRIM [Concomitant]
  11. OXYCOD/APAP [Concomitant]
  12. SANCTURA [Concomitant]
  13. SERTRALINE [Concomitant]

REACTIONS (4)
  - Lethargy [Unknown]
  - Fatigue [Unknown]
  - Headache [Unknown]
  - Vomiting [Unknown]
